FAERS Safety Report 6815372-8 (Version None)
Quarter: 2010Q3

REPORT INFORMATION
  Report Type: 
  Country: None (occurrence: None)
  Receive Date: 20100702
  Receipt Date: 20100624
  Transmission Date: 20110219
  Serious: Yes (Hospitalization)
  Sender: FDA-Public Use
  Company Number: SE-ABBOTT-10P-150-0653713-00

PATIENT
  Sex: Male

DRUGS (4)
  1. CLARITHROMYCIN (NEXIUM HP) [Suspect]
     Indication: PRODUCT USED FOR UNKNOWN INDICATION
     Dates: start: 20100101, end: 20100101
  2. AMOXYCILLIN (NEXIUM HP) [Interacting]
     Indication: PRODUCT USED FOR UNKNOWN INDICATION
     Dates: start: 20100101, end: 20100101
  3. ESOPREMAZOL (NEXIUM HP) [Interacting]
     Indication: PRODUCT USED FOR UNKNOWN INDICATION
     Dates: start: 20100101, end: 20100101
  4. WARAN [Interacting]
     Indication: ATRIAL FIBRILLATION
     Route: 048
     Dates: start: 20070101, end: 20100401

REACTIONS (7)
  - DRUG INTERACTION [None]
  - HAEMATOMA [None]
  - HAEMORRHAGE [None]
  - HEAD INJURY [None]
  - INTERNATIONAL NORMALISED RATIO INCREASED [None]
  - LIMB INJURY [None]
  - SYNCOPE [None]
